FAERS Safety Report 9297853 (Version 1)
Quarter: 2013Q2

REPORT INFORMATION
  Report Type: Spontaneous
  Country: GB (occurrence: GB)
  Receive Date: 20130520
  Receipt Date: 20130520
  Transmission Date: 20140414
  Serious: Yes (Hospitalization, Other)
  Sender: FDA-Public Use
  Company Number: GB-SUN PHARMACEUTICAL INDUSTRIES LTD-2013SUN00598

PATIENT
  Age: 24 Year
  Sex: Female

DRUGS (6)
  1. OLANZAPINE 10 MG TABLETS [Suspect]
     Indication: BIPOLAR DISORDER
     Dosage: 10 MG, OD
     Route: 065
  2. OLANZAPINE 10 MG TABLETS [Suspect]
     Dosage: 15 MG, OD
     Route: 065
  3. OLANZAPINE 10 MG TABLETS [Suspect]
     Dosage: 20 MG, OD
     Route: 065
  4. OLANZAPINE 10 MG TABLETS [Suspect]
     Dosage: UNK
  5. LITHIUM [Concomitant]
     Dosage: 400 MG, BID
  6. SODIUM VALPROATE [Concomitant]
     Indication: BIPOLAR DISORDER
     Dosage: 1000 MG, OD

REACTIONS (6)
  - Foetal growth restriction [None]
  - Exposure during pregnancy [None]
  - Mania [Recovered/Resolved]
  - Pregnancy [None]
  - Caesarean section [None]
  - Refusal of treatment by patient [None]
